FAERS Safety Report 15930366 (Version 1)
Quarter: 2019Q1

REPORT INFORMATION
  Report Type: Spontaneous
  Country: US (occurrence: US)
  Receive Date: 20190115
  Receipt Date: 20190115
  Transmission Date: 20190417
  Serious: Yes (Hospitalization)
  Sender: FDA-Public Use
  Company Number: None

PATIENT
  Sex: Female

DRUGS (25)
  1. AMOXICILLIN. [Concomitant]
     Active Substance: AMOXICILLIN
  2. PYRIDOSTIGM [Concomitant]
  3. LIPITOR [Concomitant]
     Active Substance: ATORVASTATIN CALCIUM
  4. NORVASC [Concomitant]
     Active Substance: AMLODIPINE BESYLATE
  5. AMLODIPINE [Concomitant]
     Active Substance: AMLODIPINE BESYLATE
  6. HYDROCO/APAP [Concomitant]
     Active Substance: ACETAMINOPHEN\HYDROCODONE
  7. VASCEPA [Concomitant]
     Active Substance: ICOSAPENT ETHYL
  8. LAMOTRIGINE. [Concomitant]
     Active Substance: LAMOTRIGINE
  9. LORAZEPAM. [Concomitant]
     Active Substance: LORAZEPAM
  10. RENA-VITE [Concomitant]
     Active Substance: ASCORBIC ACID\BIOTIN\CALCIUM PANTOTHENATE\CYANOCOBALAMIN\FOLIC ACID\NIACINAMIDE\PYRIDOXINE HYDROCHLORIDE\RIBOFLAVIN\THIAMINE MONONITRATE
  11. ESOMEPRA [Concomitant]
     Active Substance: ESOMEPRAZOLE
  12. TRULANCE [Concomitant]
     Active Substance: PLECANATIDE
  13. ATORVASTATIN [Concomitant]
     Active Substance: ATORVASTATIN
  14. EFFEXOR [Concomitant]
     Active Substance: VENLAFAXINE HYDROCHLORIDE
  15. LEVOXYL [Concomitant]
     Active Substance: LEVOTHYROXINE SODIUM
  16. SYNTHROID [Concomitant]
     Active Substance: LEVOTHYROXINE SODIUM
  17. OXYCODONE AND ACETAMINOPHEN [Concomitant]
     Active Substance: ACETAMINOPHEN\OXYCODONE HYDROCHLORIDE
  18. OMNITROPE [Suspect]
     Active Substance: SOMATROPIN
     Indication: HYPOPITUITARISM
     Route: 058
     Dates: start: 20151203
  19. TRAZODONE [Concomitant]
     Active Substance: TRAZODONE HYDROCHLORIDE
  20. SAPHRIS [Concomitant]
     Active Substance: ASENAPINE MALEATE
  21. NEXIUM [Concomitant]
     Active Substance: ESOMEPRAZOLE MAGNESIUM
  22. DIOVAN [Concomitant]
     Active Substance: VALSARTAN
  23. VENLAFAXINE [Concomitant]
     Active Substance: VENLAFAXINE HYDROCHLORIDE
  24. A-HYDROCORT [Concomitant]
     Active Substance: HYDROCORTISONE SODIUM SUCCINATE
  25. LOSARTAN POT [Concomitant]
     Active Substance: LOSARTAN POTASSIUM

REACTIONS (3)
  - Ill-defined disorder [None]
  - Renal failure [None]
  - Therapy cessation [None]
